FAERS Safety Report 6060048-0 (Version None)
Quarter: 2009Q1

REPORT INFORMATION
  Report Type: 
  Country: None (occurrence: None)
  Receive Date: 20090128
  Receipt Date: 20090113
  Transmission Date: 20090719
  Serious: Yes (Other)
  Sender: FDA-Public Use
  Company Number: 039577

PATIENT
  Sex: Male

DRUGS (2)
  1. CLARAVIS [Suspect]
     Indication: ACNE
     Dosage: 80 MG, QD, ORAL
     Route: 048
     Dates: start: 20081209, end: 20090105
  2. ACCUTANE [Suspect]
     Indication: ACNE
     Dosage: 80 MG, QD, ORAL
     Route: 048
     Dates: start: 20081117

REACTIONS (2)
  - LIGAMENT RUPTURE [None]
  - SPORTS INJURY [None]
